FAERS Safety Report 6504081-0 (Version None)
Quarter: 2009Q4

REPORT INFORMATION
  Report Type: 
  Country: None (occurrence: None)
  Receive Date: 20091217
  Receipt Date: 20091208
  Transmission Date: 20100525
  Serious: Yes (Hospitalization)
  Sender: FDA-Public Use
  Company Number: CA-JNJFOC-20091203059

PATIENT
  Sex: Male

DRUGS (13)
  1. REMICADE [Suspect]
     Route: 042
  2. REMICADE [Suspect]
     Route: 042
  3. REMICADE [Suspect]
     Dosage: 9 INFUSIONS ON UNSPECIFIED DATES
     Route: 042
  4. REMICADE [Suspect]
     Indication: CROHN'S DISEASE
     Route: 042
  5. URSODIOL [Concomitant]
  6. COLCHICINE [Concomitant]
  7. CALCIUM [Concomitant]
  8. PREDNISONE [Concomitant]
  9. VITAMIN D [Concomitant]
  10. HYDROXYZINE [Concomitant]
  11. TRAZODONE HCL [Concomitant]
  12. CIPRALEX [Concomitant]
  13. PANTOPRAZOLE [Concomitant]

REACTIONS (5)
  - COUGH [None]
  - MIGRAINE [None]
  - NAUSEA [None]
  - PYREXIA [None]
  - VOMITING [None]
